FAERS Safety Report 16558972 (Version 1)
Quarter: 2019Q3

REPORT INFORMATION
  Report Type: Spontaneous
  Country: MX (occurrence: MX)
  Receive Date: 20190711
  Receipt Date: 20190711
  Transmission Date: 20191004
  Serious: Yes (Hospitalization)
  Sender: FDA-Public Use
  Company Number: MX-JNJFOC-20190705891

PATIENT
  Age: 73 Year
  Sex: Female

DRUGS (1)
  1. XARELTO [Suspect]
     Active Substance: RIVAROXABAN
     Indication: ATRIAL FIBRILLATION
     Dosage: 20 MG, QD
     Route: 048

REACTIONS (3)
  - Craniocerebral injury [Not Recovered/Not Resolved]
  - Traumatic intracranial haemorrhage [Not Recovered/Not Resolved]
  - Victim of crime [Not Recovered/Not Resolved]

NARRATIVE: CASE EVENT DATE: 20190627
